APPROVED DRUG PRODUCT: COLCHICINE
Active Ingredient: COLCHICINE
Strength: 0.6MG
Dosage Form/Route: TABLET;ORAL
Application: A209173 | Product #001 | TE Code: AB
Applicant: STRIDES PHARMA GLOBAL PTE LTD
Approved: Mar 10, 2022 | RLD: No | RS: No | Type: RX